FAERS Safety Report 8835094 (Version 1)
Quarter: 2012Q4

REPORT INFORMATION
  Report Type: Spontaneous
  Country: DE (occurrence: None)
  Receive Date: 20121009
  Receipt Date: 20121009
  Transmission Date: 20130627
  Serious: Yes (Other)
  Sender: FDA-Public Use
  Company Number: EU-2012-10251

PATIENT
  Age: 47 Year
  Sex: Male

DRUGS (3)
  1. PLETAL [Suspect]
     Route: 048
  2. ACETYLSALICYLIC ACID [Concomitant]
  3. SIMVASTATIN (SIMVASTATIN) [Concomitant]

REACTIONS (1)
  - Congestive cardiomyopathy [None]
